FAERS Safety Report 8277364-4 (Version None)
Quarter: 2012Q2

REPORT INFORMATION
  Report Type: 
  Country: None (occurrence: None)
  Receive Date: 20120412
  Receipt Date: 20120403
  Transmission Date: 20120825
  Serious: Yes (Other)
  Sender: FDA-Public Use
  Company Number: US-ASTRAZENECA-2012SE22276

PATIENT
  Age: 40 Year
  Sex: Female

DRUGS (1)
  1. SEROQUEL XR [Suspect]
     Indication: DEPRESSION
     Route: 048

REACTIONS (5)
  - STRESS [None]
  - LOSS OF CONSCIOUSNESS [None]
  - EATING DISORDER [None]
  - FALL [None]
  - LIGAMENT SPRAIN [None]
